FAERS Safety Report 24383717 (Version 1)
Quarter: 2024Q3

REPORT INFORMATION
  Report Type: Spontaneous
  Country: US (occurrence: None)
  Receive Date: 20240930
  Receipt Date: 20240930
  Transmission Date: 20241017
  Serious: Yes (Life-Threatening, Hospitalization, Other)
  Sender: Public
  Company Number: None

PATIENT
  Age: 66 Year
  Sex: Female
  Weight: 51.75 kg

DRUGS (1)
  1. LEXAPRO [Suspect]
     Active Substance: ESCITALOPRAM OXALATE
     Indication: Insomnia
     Dosage: 10 MG DAILY ORAL
     Route: 048
     Dates: start: 20060901

REACTIONS (16)
  - Withdrawal syndrome [None]
  - Insomnia [None]
  - Ventricular tachycardia [None]
  - Diarrhoea [None]
  - Confusional state [None]
  - Memory impairment [None]
  - Coordination abnormal [None]
  - Gait disturbance [None]
  - Fall [None]
  - Nausea [None]
  - Vomiting [None]
  - Impaired driving ability [None]
  - Anxiety [None]
  - Feeling abnormal [None]
  - Abnormal behaviour [None]
  - Contusion [None]

NARRATIVE: CASE EVENT DATE: 20230822
